FAERS Safety Report 5762760-7 (Version None)
Quarter: 2008Q2

REPORT INFORMATION
  Report Type: 
  Country: None (occurrence: None)
  Receive Date: 20080609
  Receipt Date: 20080529
  Transmission Date: 20081010
  Serious: Yes (Other)
  Sender: FDA-Public Use
  Company Number: GB-AVENTIS-200815038GDDC

PATIENT
  Age: 33 Year
  Sex: Female

DRUGS (2)
  1. TRIAMCINOLONE ACETONIDE [Suspect]
     Indication: INTERMEDIATE UVEITIS
     Dosage: DOSE QUANTITY: 40; DOSE UNIT: MILLIGRAM PER MILLILITRE
     Route: 051
  2. CHLORAMPHENICOL [Concomitant]
     Dosage: DOSE QUANTITY: 1
     Route: 047

REACTIONS (1)
  - EYE ABSCESS [None]
